FAERS Safety Report 19871497 (Version 1)
Quarter: 2021Q3

REPORT INFORMATION
  Report Type: Spontaneous
  Country: US (occurrence: US)
  Receive Date: 20210922
  Receipt Date: 20210922
  Transmission Date: 20211014
  Serious: Yes (Other)
  Sender: FDA-Public Use
  Company Number: None

PATIENT
  Age: 65 Year
  Sex: Female

DRUGS (1)
  1. REGEN?COV [Suspect]
     Active Substance: CASIRIVIMAB\IMDEVIMAB

REACTIONS (4)
  - Pallor [None]
  - Somnolence [None]
  - Paraesthesia [None]
  - Cold sweat [None]

NARRATIVE: CASE EVENT DATE: 20210903
